FAERS Safety Report 4337426-0 (Version None)
Quarter: 2004Q2

REPORT INFORMATION
  Report Type: 
  Country: None (occurrence: None)
  Receive Date: 20040407
  Receipt Date: 20040325
  Transmission Date: 20050107
  Serious: Yes (Hospitalization)
  Sender: FDA-Public Use
  Company Number: 2004020307

PATIENT
  Age: 81 Year
  Sex: Female

DRUGS (16)
  1. ATORVASTATIN (ATORVASTATIN) [Suspect]
     Indication: HYPERLIPIDAEMIA
     Dosage: 10 MG (DAILY), ORAL
     Route: 048
     Dates: end: 20040131
  2. NICARDIPINE HCL [Suspect]
     Indication: HYPERTENSION
     Dosage: 120 ML (DAILY), INTRAVENOUS
     Route: 042
     Dates: start: 20040131, end: 20040202
  3. CEFCAPENE PIVOXIL HYDROCHLORIDE (CEFCAPENE PIVOXIL HYDROCHLORIDE) [Suspect]
     Indication: INFECTION
     Dosage: 3 (DF) (DAILY), ORAL
     Route: 048
     Dates: start: 20040123, end: 20040131
  4. PIPERACILLIN SODIUM [Suspect]
     Indication: INFECTION
     Dosage: 2 GRAM (DAILY), INTRAVENOUS
     Route: 042
     Dates: start: 20040131, end: 20040202
  5. NIFEDIPINE [Concomitant]
  6. BUFFERIN [Concomitant]
  7. NICERGOLINE (NICERGOLINE) [Concomitant]
  8. CARBOCISTEINE (CARBOCISTEINE) [Concomitant]
  9. TRETOQUINOL HYDROCHLORIDE (TRETOQUINOL HYDROCHLORIDE) [Concomitant]
  10. GLYCEOL (GLYCEROL, FRUCTOSE) [Concomitant]
  11. DIGOXIN [Concomitant]
  12. CITICOLINE (CITICOLINE) [Concomitant]
  13. FAMOTIDINE [Concomitant]
  14. METILDIGOXIN (METILDIGOXIN) [Concomitant]
  15. THEOPHYLLINE [Concomitant]
  16. BROTIZOLAM (BROTIZOLAM) [Concomitant]

REACTIONS (17)
  - ASPARTATE AMINOTRANSFERASE INCREASED [None]
  - BLOOD BILIRUBIN INCREASED [None]
  - BLOOD GLUCOSE INCREASED [None]
  - BLOOD LACTATE DEHYDROGENASE INCREASED [None]
  - BLOOD POTASSIUM DECREASED [None]
  - BLOOD UREA INCREASED [None]
  - CEREBRAL INFARCTION [None]
  - GLUCOSE URINE PRESENT [None]
  - LYMPHOCYTE PERCENTAGE DECREASED [None]
  - MONOCYTE PERCENTAGE DECREASED [None]
  - OCCULT BLOOD POSITIVE [None]
  - PLATELET COUNT DECREASED [None]
  - PROTEIN URINE PRESENT [None]
  - RED BLOOD CELLS URINE [None]
  - RHABDOMYOLYSIS [None]
  - WHITE BLOOD CELL COUNT INCREASED [None]
  - WHITE BLOOD CELLS URINE POSITIVE [None]
